FAERS Safety Report 10231548 (Version 1)
Quarter: 2014Q2

REPORT INFORMATION
  Report Type: Spontaneous
  Country: CN (occurrence: CN)
  Receive Date: 20140611
  Receipt Date: 20140611
  Transmission Date: 20141212
  Serious: Yes (Other)
  Sender: FDA-Public Use
  Company Number: CN-ROXANE LABORATORIES, INC.-2014-BI-25446GD

PATIENT
  Sex: Female

DRUGS (6)
  1. PREDNISONE [Suspect]
     Indication: SYSTEMIC LUPUS ERYTHEMATOSUS
     Dosage: APPROXIMATELY 10 - 20 MG
     Route: 065
  2. PREDNISONE [Suspect]
     Indication: SJOGREN^S SYNDROME
     Dosage: 10 - 20 MG
     Route: 065
  3. PREDNISONE [Suspect]
     Dosage: 20 MG
     Route: 065
  4. PREDNISONE [Suspect]
     Dosage: 120 MG
     Route: 065
  5. PREDNISONE [Suspect]
     Dosage: 40 MG
     Route: 065
  6. CEFOTAXIME [Concomitant]
     Indication: BACTERIAL INFECTION
     Route: 042
     Dates: start: 20120115, end: 20120117

REACTIONS (7)
  - Left ventricle outflow tract obstruction [Recovered/Resolved]
  - Cardiac hypertrophy [Unknown]
  - Mitral valve incompetence [Unknown]
  - Cardiac septal hypertrophy [Unknown]
  - Ventricular dyskinesia [Recovered/Resolved]
  - Mitral valve prolapse [Recovered/Resolved]
  - Cardiac murmur [Recovered/Resolved]
